FAERS Safety Report 9657282 (Version 1)
Quarter: 2013Q4

REPORT INFORMATION
  Report Type: Spontaneous
  Country: US (occurrence: US)
  Receive Date: 20131030
  Receipt Date: 20131030
  Transmission Date: 20140711
  Serious: Yes (Hospitalization)
  Sender: FDA-Public Use
  Company Number: US-MALLINCKRODT-T201204639

PATIENT
  Age: 43 Year
  Sex: Female

DRUGS (2)
  1. FENTANYL CITRATE [Suspect]
     Dosage: UNK
  2. OXYCODONE ALONE OR IN COMBINATION [Suspect]
     Dosage: 2 TABS/PILLS/CAPSULES

REACTIONS (1)
  - Drug abuse [Unknown]
